FAERS Safety Report 15983878 (Version 1)
Quarter: 2019Q1

REPORT INFORMATION
  Report Type: Spontaneous
  Country: US (occurrence: US)
  Receive Date: 20190219
  Receipt Date: 20190219
  Transmission Date: 20190418
  Serious: Yes (Disabling)
  Sender: FDA-Public Use
  Company Number: None

PATIENT
  Age: 62 Year
  Sex: Female
  Weight: 67.5 kg

DRUGS (1)
  1. AJOVY [Suspect]
     Active Substance: FREMANEZUMAB-VFRM
     Indication: MIGRAINE
     Dosage: ?          QUANTITY:1 INJECTION(S);OTHER FREQUENCY:ONCE EACH 30 DAYS;?
     Route: 030
     Dates: start: 20190106, end: 20190206

REACTIONS (7)
  - Dementia [None]
  - Pulmonary oedema [None]
  - Visual impairment [None]
  - Feeling abnormal [None]
  - Pain [None]
  - Influenza like illness [None]
  - Drug ineffective [None]

NARRATIVE: CASE EVENT DATE: 20190219
